FAERS Safety Report 5599782-5 (Version None)
Quarter: 2008Q1

REPORT INFORMATION
  Report Type: 
  Country: None (occurrence: None)
  Receive Date: 20080118
  Receipt Date: 20080118
  Transmission Date: 20080703
  Serious: Yes (Life-Threatening, Hospitalization)
  Sender: FDA-Public Use
  Company Number: None

PATIENT
  Age: 37 Year
  Sex: Female

DRUGS (1)
  1. PREMARIN [Suspect]

REACTIONS (9)
  - BLOOD PRESSURE DECREASED [None]
  - CHOLELITHIASIS [None]
  - HAEMATOCRIT DECREASED [None]
  - HAEMOTHORAX [None]
  - HEPATIC HAEMATOMA [None]
  - PORTAL VEIN THROMBOSIS [None]
  - RENAL FAILURE ACUTE [None]
  - RENAL TUBULAR NECROSIS [None]
  - TACHYCARDIA [None]
